FAERS Safety Report 4633937-9 (Version None)
Quarter: 2005Q1

REPORT INFORMATION
  Report Type: 
  Country: None (occurrence: None)
  Receive Date: 20050325
  Receipt Date: 20050104
  Transmission Date: 20050727
  Serious: No
  Sender: FDA-Public Use
  Company Number: USA041287075

PATIENT
  Age: 75 Year
  Sex: Female
  Weight: 54 kg

DRUGS (4)
  1. FORTEO [Suspect]
     Indication: OSTEOPOROSIS
     Dosage: 20 UG DAY
     Dates: start: 20041217
  2. EVISTA [Concomitant]
  3. CALCIUM GLUCONATE [Concomitant]
  4. INFLUENZA VACCINE [Concomitant]

REACTIONS (6)
  - CONSTIPATION [None]
  - DIARRHOEA [None]
  - INITIAL INSOMNIA [None]
  - INSOMNIA [None]
  - NAUSEA [None]
  - TREMOR [None]
